FAERS Safety Report 18108976 (Version 1)
Quarter: 2020Q3

REPORT INFORMATION
  Report Type: Spontaneous
  Country: US (occurrence: US)
  Receive Date: 20200804
  Receipt Date: 20200804
  Transmission Date: 20201103
  Serious: No
  Sender: FDA-Public Use
  Company Number: US-PFIZER INC-2020293837

PATIENT
  Age: 37 Year
  Sex: Female

DRUGS (2)
  1. IBRANCE [Suspect]
     Active Substance: PALBOCICLIB
     Dosage: 100 MG, CYCLIC (21 DAYS, THEN TAKE 7 DAYS OFF, DAILY)
     Route: 048
  2. IBRANCE [Suspect]
     Active Substance: PALBOCICLIB
     Indication: BREAST CANCER
     Dosage: 125 MG

REACTIONS (4)
  - Hepatic enzyme increased [Unknown]
  - Blood count abnormal [Unknown]
  - Neutrophil count decreased [Unknown]
  - White blood cell count decreased [Unknown]
